FAERS Safety Report 14646572 (Version 10)
Quarter: 2021Q1

REPORT INFORMATION
  Report Type: Spontaneous
  Country: ME (occurrence: ME)
  Receive Date: 20180316
  Receipt Date: 20210319
  Transmission Date: 20210419
  Serious: Yes (Other)
  Sender: FDA-Public Use
  Company Number: PHHY2018ME040578

PATIENT
  Age: 56 Year
  Sex: Female

DRUGS (2)
  1. DICLOFENAC [Suspect]
     Active Substance: DICLOFENAC
     Dosage: 100 MG, BID
     Route: 065
  2. DICLOFENAC [Suspect]
     Active Substance: DICLOFENAC
     Indication: BACK PAIN
     Dosage: 200 MG QD SLOW?RELEASE, FOR OVER 7 YEARS
     Route: 065

REACTIONS (14)
  - Drug abuse [Unknown]
  - Intestinal stenosis [Recovered/Resolved]
  - Lymphocytic infiltration [Unknown]
  - Overdose [Unknown]
  - Abdominal pain [Unknown]
  - Eosinophilia [Unknown]
  - Nausea [Unknown]
  - Mucosal erosion [Recovered/Resolved]
  - Flatulence [Unknown]
  - Cryptitis [Unknown]
  - Occult blood positive [Unknown]
  - Gastrointestinal disorder [Unknown]
  - Arthralgia [Unknown]
  - Large intestinal ulcer [Recovered/Resolved]
